FAERS Safety Report 6532112-0 (Version None)
Quarter: 2010Q1

REPORT INFORMATION
  Report Type: 
  Country: None (occurrence: None)
  Receive Date: 20100107
  Receipt Date: 20100107
  Transmission Date: 20100710
  Serious: No
  Sender: FDA-Public Use
  Company Number: None

PATIENT
  Age: 75 Year
  Sex: Male

DRUGS (1)
  1. ZOLEDRONIC [Suspect]
     Dosage: ONCE IV
     Route: 042
     Dates: start: 20091106

REACTIONS (1)
  - PYREXIA [None]
